FAERS Safety Report 4330776-3 (Version None)
Quarter: 2004Q1

REPORT INFORMATION
  Report Type: 
  Country: None (occurrence: None)
  Receive Date: 20040331
  Receipt Date: 20040316
  Transmission Date: 20041129
  Serious: Yes (Hospitalization)
  Sender: FDA-Public Use
  Company Number: US_020181028

PATIENT
  Age: 56 Year
  Sex: Male

DRUGS (5)
  1. HUMALOG [Suspect]
     Indication: DIABETES MELLITUS
     Dates: start: 20030901
  2. HUMULIN N [Suspect]
     Indication: DIABETES MELLITUS
     Dosage: 75 U/DAY
     Dates: start: 20000101, end: 20030901
  3. FENTANYL [Concomitant]
  4. LANTUS [Concomitant]
  5. GLUCOVANCE [Concomitant]

REACTIONS (14)
  - AMNESIA [None]
  - BLOOD GLUCOSE DECREASED [None]
  - BLOOD GLUCOSE INCREASED [None]
  - CORONARY ARTERY SURGERY [None]
  - DIABETIC FOOT [None]
  - FLUID RETENTION [None]
  - HYPERHIDROSIS [None]
  - MYOCARDIAL INFARCTION [None]
  - PAIN [None]
  - PHARMACEUTICAL PRODUCT COMPLAINT [None]
  - SPINAL CORD INJURY [None]
  - THYROID DISORDER [None]
  - TREMOR [None]
  - WEIGHT INCREASED [None]
